FAERS Safety Report 13931078 (Version 2)
Quarter: 2018Q1

REPORT INFORMATION
  Report Type: Spontaneous
  Country: NL (occurrence: NL)
  Receive Date: 20170902
  Receipt Date: 20180118
  Transmission Date: 20180508
  Serious: Yes (Life-Threatening, Other)
  Sender: FDA-Public Use
  Company Number: NL-AUROBINDO-AUR-APL-2017-39800

PATIENT
  Age: 73 Year
  Sex: Male

DRUGS (20)
  1. TOLBUTAMIDE. [Concomitant]
     Active Substance: TOLBUTAMIDE
  2. MELATONIN [Concomitant]
     Active Substance: MELATONIN
     Indication: PRODUCT USED FOR UNKNOWN INDICATION
  3. PARACETAMOL [Interacting]
     Active Substance: ACETAMINOPHEN
     Route: 042
  4. ALFACALCIDOL [Concomitant]
     Active Substance: ALFACALCIDOL
     Indication: PRODUCT USED FOR UNKNOWN INDICATION
  5. PARACETAMOL [Suspect]
     Active Substance: ACETAMINOPHEN
     Indication: PAIN
     Route: 042
  6. FLUCLOXACILLIN [Interacting]
     Active Substance: FLUCLOXACILLIN
     Indication: ANTIBIOTIC THERAPY
     Route: 042
  7. BENEFIX [Concomitant]
     Active Substance: COAGULATION FACTOR IX RECOMBINANT HUMAN\ISOPROPYL ALCOHOL
     Indication: PRODUCT USED FOR UNKNOWN INDICATION
  8. INSULIN [Concomitant]
     Active Substance: INSULIN NOS
     Dosage: DOSED BASED ON GLUCOSE LEVELS
  9. TOLBUTAMIDE. [Concomitant]
     Active Substance: TOLBUTAMIDE
     Indication: PRODUCT USED FOR UNKNOWN INDICATION
  10. ALFACALCIDOL [Concomitant]
     Active Substance: ALFACALCIDOL
  11. CYKLOKAPRON [Concomitant]
     Active Substance: TRANEXAMIC ACID
  12. THIAMINE. [Concomitant]
     Active Substance: THIAMINE
     Indication: PRODUCT USED FOR UNKNOWN INDICATION
  13. BENEFIX [Concomitant]
     Active Substance: COAGULATION FACTOR IX RECOMBINANT HUMAN\ISOPROPYL ALCOHOL
  14. PARACETAMOL [Interacting]
     Active Substance: ACETAMINOPHEN
     Route: 054
  15. CYKLOKAPRON [Concomitant]
     Active Substance: TRANEXAMIC ACID
     Indication: PRODUCT USED FOR UNKNOWN INDICATION
  16. THIAMINE. [Concomitant]
     Active Substance: THIAMINE
  17. INSULIN [Concomitant]
     Active Substance: INSULIN NOS
     Indication: PRODUCT USED FOR UNKNOWN INDICATION
     Dosage: DOSED BASED ON GLUCOSE LEVELS
  18. PARACETAMOL [Interacting]
     Active Substance: ACETAMINOPHEN
     Route: 054
  19. MELATONIN [Concomitant]
     Active Substance: MELATONIN
  20. HALDOL [Concomitant]
     Active Substance: HALOPERIDOL
     Indication: PRODUCT USED FOR UNKNOWN INDICATION
     Dosage: HALDOL DROPLETS BID

REACTIONS (4)
  - Pyroglutamate increased [Unknown]
  - Drug interaction [Unknown]
  - Metabolic acidosis [Recovered/Resolved]
  - Anion gap increased [Unknown]
